FAERS Safety Report 8081187-9 (Version None)
Quarter: 2012Q1

REPORT INFORMATION
  Report Type: 
  Country: None (occurrence: None)
  Receive Date: 20120130
  Receipt Date: 20120123
  Transmission Date: 20120608
  Serious: Yes (Other)
  Sender: FDA-Public Use
  Company Number: GB-GLAXOSMITHKLINE-B0777080A

PATIENT
  Age: 62 Year
  Sex: Male

DRUGS (6)
  1. AMLODIPINE [Concomitant]
     Dosage: 10MG PER DAY
  2. SIMVASTATIN [Concomitant]
     Dosage: 40MG PER DAY
  3. PAROXETINE HYDROCHLORIDE [Suspect]
     Indication: DEPRESSION
     Route: 048
  4. ZOLPIDEM [Suspect]
     Indication: INSOMNIA
     Dosage: 10MG PER DAY
     Route: 048
  5. LORATADINE [Concomitant]
     Dosage: 10MG PER DAY
  6. BENDROFLUMETHIAZIDE [Concomitant]
     Dosage: 2.5MG PER DAY

REACTIONS (4)
  - MEMORY IMPAIRMENT [None]
  - INSOMNIA [None]
  - CONFUSIONAL STATE [None]
  - LOSS OF LIBIDO [None]
